FAERS Safety Report 5103627-7 (Version None)
Quarter: 2006Q3

REPORT INFORMATION
  Report Type: 
  Country: None (occurrence: None)
  Receive Date: 20060911
  Receipt Date: 20060911
  Transmission Date: 20061208
  Serious: Yes (Hospitalization)
  Sender: FDA-Public Use
  Company Number: None

PATIENT
  Sex: Female
  Weight: 84 kg

DRUGS (1)
  1. DEPODUR [Suspect]
     Indication: SURGERY
     Dosage: 10MG  ONCE  EPIDURAL
     Route: 008
     Dates: start: 20060905, end: 20060905

REACTIONS (1)
  - BLOOD PRESSURE DECREASED [None]
